FAERS Safety Report 11649390 (Version 3)
Quarter: 2015Q4

REPORT INFORMATION
  Report Type: Spontaneous
  Country: NZ (occurrence: NZ)
  Receive Date: 20151021
  Receipt Date: 20151105
  Transmission Date: 20160304
  Serious: Yes (Life-Threatening, Other)
  Sender: FDA-Public Use
  Company Number: NZ-JNJFOC-20151012131

PATIENT
  Sex: Male
  Weight: 100 kg

DRUGS (1)
  1. REMICADE [Suspect]
     Active Substance: INFLIXIMAB
     Indication: PSORIASIS
     Route: 042
     Dates: start: 20150416, end: 20150723

REACTIONS (5)
  - Pulmonary mass [Recovering/Resolving]
  - Pleuritic pain [Unknown]
  - Inflammation [Recovering/Resolving]
  - Pyrexia [Unknown]
  - Erythema nodosum [Unknown]
